FAERS Safety Report 8224531-1 (Version None)
Quarter: 2012Q1

REPORT INFORMATION
  Report Type: 
  Country: None (occurrence: None)
  Receive Date: 20120321
  Receipt Date: 20120313
  Transmission Date: 20120608
  Serious: Yes (Death, Hospitalization)
  Sender: FDA-Public Use
  Company Number: SV-PFIZER INC-2012070772

PATIENT
  Age: 92 Year
  Sex: Male

DRUGS (1)
  1. PANTOPRAZOLE [Suspect]
     Indication: GASTRITIS
     Dosage: 40 MG, UNK
     Route: 048

REACTIONS (2)
  - DEATH [None]
  - CEREBROVASCULAR ACCIDENT [None]
